FAERS Safety Report 19429101 (Version 1)
Quarter: 2021Q2

REPORT INFORMATION
  Report Type: Spontaneous
  Country: US (occurrence: US)
  Receive Date: 20210617
  Receipt Date: 20210617
  Transmission Date: 20210717
  Serious: Yes (Death)
  Sender: FDA-Public Use
  Company Number: None

PATIENT
  Age: 64 Year
  Sex: Female
  Weight: 64.8 kg

DRUGS (2)
  1. DAUNORUBICIN [Suspect]
     Active Substance: DAUNORUBICIN
     Dates: end: 20210522
  2. CYTARABINE. [Suspect]
     Active Substance: CYTARABINE
     Dates: end: 20210528

REACTIONS (10)
  - Palliative care [None]
  - Asthenia [None]
  - Pyrexia [None]
  - Wheezing [None]
  - Diarrhoea [None]
  - General physical health deterioration [None]
  - Platelet count decreased [None]
  - Aspergillus test positive [None]
  - Pain in extremity [None]
  - Pneumonia [None]

NARRATIVE: CASE EVENT DATE: 20210608
